FAERS Safety Report 8167390-8 (Version None)
Quarter: 2012Q1

REPORT INFORMATION
  Report Type: 
  Country: None (occurrence: None)
  Receive Date: 20120227
  Receipt Date: 20120221
  Transmission Date: 20120608
  Serious: Yes (Hospitalization, Other)
  Sender: FDA-Public Use
  Company Number: US-PFIZER INC-2010083649

PATIENT
  Sex: Female
  Weight: 62.585 kg

DRUGS (9)
  1. CHANTIX [Suspect]
     Dosage: 1 MG, 2X/DAY
     Route: 048
     Dates: start: 20100101, end: 20100701
  2. VICODIN [Concomitant]
     Dosage: UNK
  3. PROVENTIL GENTLEHALER [Concomitant]
     Dosage: UNK
  4. CHANTIX [Suspect]
     Dosage: UNK
     Route: 048
     Dates: start: 20110101, end: 20110101
  5. SUDAFED 12 HOUR [Concomitant]
     Indication: SEASONAL ALLERGY
  6. CHANTIX [Suspect]
     Indication: SMOKING CESSATION THERAPY
     Dosage: 0.5 MG, 1X/DAY
     Route: 048
     Dates: start: 20100501, end: 20100101
  7. LEVOTHYROXINE [Concomitant]
     Dosage: 200 UG, UNK
  8. SUDAFED 12 HOUR [Concomitant]
     Indication: HOUSE DUST ALLERGY
     Dosage: UNK
  9. FLUTICASONE [Concomitant]
     Dosage: 50 UG, UNK
     Route: 045

REACTIONS (18)
  - MALAISE [None]
  - ANXIETY [None]
  - PALLOR [None]
  - FEELING ABNORMAL [None]
  - NAUSEA [None]
  - NERVOUSNESS [None]
  - PNEUMONIA [None]
  - APHASIA [None]
  - WHITE BLOOD CELL COUNT INCREASED [None]
  - WITHDRAWAL SYNDROME [None]
  - HYPERHIDROSIS [None]
  - HYPERPHAGIA [None]
  - WEIGHT INCREASED [None]
  - CRYING [None]
  - GRIEF REACTION [None]
  - LUNG DISORDER [None]
  - ABDOMINAL PAIN UPPER [None]
  - DARK CIRCLES UNDER EYES [None]
